FAERS Safety Report 7764919-6 (Version None)
Quarter: 2011Q3

REPORT INFORMATION
  Report Type: 
  Country: None (occurrence: None)
  Receive Date: 20110921
  Receipt Date: 20110912
  Transmission Date: 20111222
  Serious: Yes (Hospitalization)
  Sender: FDA-Public Use
  Company Number: JP-JNJFOC-20110302458

PATIENT
  Sex: Female
  Weight: 55 kg

DRUGS (12)
  1. RISPERIDONE [Suspect]
     Indication: EPILEPTIC PSYCHOSIS
     Route: 048
     Dates: start: 20110118, end: 20110222
  2. CLONAZEPAM [Concomitant]
     Indication: EPILEPTIC PSYCHOSIS
     Route: 048
  3. CEFPODOXIME PROXETIL [Concomitant]
     Indication: RESPIRATORY FUME INHALATION DISORDER
     Route: 048
     Dates: start: 20110208, end: 20110212
  4. TRANEXAMIC ACID [Concomitant]
     Indication: RESPIRATORY FUME INHALATION DISORDER
     Route: 048
     Dates: start: 20110208, end: 20110212
  5. INVEGA [Suspect]
     Route: 048
     Dates: start: 20110118, end: 20110221
  6. CARBAMAZEPINE [Interacting]
     Indication: EPILEPSY
     Route: 048
  7. MAGMITT [Concomitant]
     Indication: CONSTIPATION
     Route: 048
  8. MICARDIS [Concomitant]
     Indication: HYPERTENSION
     Route: 048
     Dates: start: 20091218
  9. INVEGA [Suspect]
     Indication: EPILEPTIC PSYCHOSIS
     Route: 048
     Dates: start: 20110222, end: 20110225
  10. VALPROATE SODIUM [Concomitant]
     Indication: EPILEPSY
     Route: 048
  11. METHISTA [Concomitant]
     Indication: RESPIRATORY FUME INHALATION DISORDER
     Route: 048
     Dates: start: 20110208, end: 20110212
  12. CYSVON [Concomitant]
     Indication: INSOMNIA
     Route: 048
     Dates: start: 20110222

REACTIONS (2)
  - DRUG INTERACTION [None]
  - RHABDOMYOLYSIS [None]
